FAERS Safety Report 5188662-5 (Version None)
Quarter: 2006Q4

REPORT INFORMATION
  Report Type: 
  Country: None (occurrence: None)
  Receive Date: 20061214
  Receipt Date: 20061201
  Transmission Date: 20070319
  Serious: Yes (Hospitalization, Other)
  Sender: FDA-Public Use
  Company Number: 2004243202US

PATIENT
  Age: 61 Year
  Sex: Male
  Weight: 82 kg

DRUGS (4)
  1. SUTENT [Suspect]
     Indication: NEUROENDOCRINE CARCINOMA
     Dosage: 50 MG (50 MG, 1 IN 1 D), ORAL
     Route: 048
     Dates: start: 20041004
  2. PROTONIX [Concomitant]
  3. SANDOSTATIN [Concomitant]
  4. MULTI-VITAMINS [Concomitant]

REACTIONS (4)
  - ARRHYTHMIA SUPRAVENTRICULAR [None]
  - ATRIAL FIBRILLATION [None]
  - BRADYCARDIA [None]
  - HYPERTENSION [None]
